FAERS Safety Report 5134395-0 (Version None)
Quarter: 2006Q4

REPORT INFORMATION
  Report Type: 
  Country: None (occurrence: None)
  Receive Date: 20061025
  Receipt Date: 20060907
  Transmission Date: 20070319
  Serious: Yes (Hospitalization)
  Sender: FDA-Public Use
  Company Number: 2006UW17656

PATIENT
  Age: 74 Year
  Sex: Female

DRUGS (13)
  1. CRESTOR [Suspect]
     Route: 048
     Dates: start: 20051101, end: 20060801
  2. BENICAR [Concomitant]
     Route: 048
     Dates: end: 20060820
  3. ALLEGRA [Concomitant]
     Indication: RHINITIS ALLERGIC
     Route: 048
  4. VIVELLE [Concomitant]
  5. AMBIEN [Concomitant]
     Dosage: ONE HALF OF A 10 MG TABLET
  6. ASPIRIN [Concomitant]
  7. CALCIUM W/VITAMIN D [Concomitant]
     Route: 048
  8. MEGA B [Concomitant]
     Route: 048
  9. COQ10 [Concomitant]
  10. OMEGA 3 [Concomitant]
     Route: 048
  11. NEXIUM [Concomitant]
     Route: 048
  12. HYDROCHLOROTHIAZIDE [Concomitant]
     Route: 048
  13. MULTIVITAMIN [Concomitant]
     Dosage: ONE TABLET PO Q DAY

REACTIONS (6)
  - ANOREXIA [None]
  - BLOOD CREATINE PHOSPHOKINASE INCREASED [None]
  - DIARRHOEA [None]
  - HEPATIC ENZYME INCREASED [None]
  - PANCREATIC ENZYMES INCREASED [None]
  - WEIGHT DECREASED [None]
